FAERS Safety Report 15767084 (Version 2)
Quarter: 2019Q1

REPORT INFORMATION
  Report Type: Spontaneous
  Country: GR (occurrence: GR)
  Receive Date: 20181227
  Receipt Date: 20190308
  Transmission Date: 20190417
  Serious: Yes (Other)
  Sender: FDA-Public Use
  Company Number: GR-BAYER-2018-241925

PATIENT
  Age: 63 Year
  Sex: Male
  Weight: 110 kg

DRUGS (7)
  1. METRONIDAZOLE. [Concomitant]
     Active Substance: METRONIDAZOLE
     Indication: DIABETIC FOOT INFECTION
     Dosage: 500 MG*3
  2. CIPROXIN 500 MG [Suspect]
     Active Substance: CIPROFLOXACIN
     Indication: DIABETIC FOOT INFECTION
     Dosage: 400 MG, TID
     Route: 042
  3. CLINDAMYCIN. [Suspect]
     Active Substance: CLINDAMYCIN
     Indication: DIABETIC FOOT INFECTION
     Dosage: 600 MG*3
  4. AMPICILLINE-SULBACTAM [Concomitant]
     Indication: DIABETIC FOOT INFECTION
  5. CIPROXIN 400/200 MG/ML [Suspect]
     Active Substance: CIPROFLOXACIN
     Indication: DIABETIC FOOT INFECTION
     Dosage: 400 MG, TID
     Route: 041
  6. DAPTOMYCIN. [Concomitant]
     Active Substance: DAPTOMYCIN
     Indication: DIABETIC FOOT INFECTION
     Dosage: 750 MG*1
  7. CIPROXIN 500 MG [Suspect]
     Active Substance: CIPROFLOXACIN
     Indication: DIABETIC FOOT INFECTION
     Dosage: 500 MG, BID
     Route: 048

REACTIONS (3)
  - Underdose [None]
  - Drug ineffective [None]
  - Dermatitis allergic [Recovered/Resolved]
